APPROVED DRUG PRODUCT: THEO-DUR
Active Ingredient: THEOPHYLLINE
Strength: 200MG
Dosage Form/Route: TABLET, EXTENDED RELEASE;ORAL
Application: A086998 | Product #001
Applicant: SCHERING CORP
Approved: Approved Prior to Jan 1, 1982 | RLD: Yes | RS: No | Type: DISCN